FAERS Safety Report 4362454-9 (Version None)
Quarter: 2004Q2

REPORT INFORMATION
  Report Type: 
  Country: None (occurrence: None)
  Receive Date: 20040521
  Receipt Date: 20040322
  Transmission Date: 20050107
  Serious: Yes (Hospitalization)
  Sender: FDA-Public Use
  Company Number: JP-GLAXOSMITHKLINE-B0328121A

PATIENT
  Age: 71 Year
  Sex: Female

DRUGS (18)
  1. VALTREX [Suspect]
     Indication: HERPES SIMPLEX
     Dosage: 500MG TWICE PER DAY
     Route: 048
     Dates: start: 20040302, end: 20040306
  2. LINCOMYCIN HYDROCHLORIDE [Suspect]
     Indication: URTICARIA
     Dosage: 1200MG PER DAY
     Route: 042
     Dates: start: 20040313, end: 20040313
  3. BROMHEXINE HCL [Concomitant]
     Dosage: 2G PER DAY
     Route: 048
     Dates: start: 20040227, end: 20040301
  4. CYANOCOBALAMIN [Concomitant]
     Dosage: 20ML PER DAY
     Route: 042
     Dates: start: 20040313
  5. LOXOPROFEN SODIUM [Concomitant]
     Indication: UPPER RESPIRATORY TRACT INFECTION
     Dosage: 180MG PER DAY
     Route: 048
     Dates: start: 20040227, end: 20040301
  6. LOXOPROFEN SODIUM [Concomitant]
     Dosage: 500ML PER DAY
     Route: 042
     Dates: start: 20040313
  7. METOCLOPRAMIDE [Concomitant]
     Indication: URTICARIA
     Dosage: 1U PER DAY
     Route: 042
     Dates: start: 20040313, end: 20040313
  8. BROMHEXINE HYDROCHLORIDE [Concomitant]
     Indication: URTICARIA
     Dosage: 1U PER DAY
     Route: 042
     Dates: start: 20040313, end: 20040313
  9. CYANOCOBALAMIN [Concomitant]
     Indication: URTICARIA
     Dosage: 1U PER DAY
     Route: 042
     Dates: start: 20040313, end: 20040313
  10. DEXAMETHASONE SODIUM PHOSPHATE [Concomitant]
     Dosage: 3.8MG PER DAY
     Route: 042
     Dates: start: 20040313
  11. PL [Concomitant]
     Indication: UPPER RESPIRATORY TRACT INFECTION
     Dosage: 2.01G PER DAY
     Route: 048
     Dates: start: 20040227, end: 20040301
  12. NEUZYM [Concomitant]
     Indication: UPPER RESPIRATORY TRACT INFECTION
     Route: 048
     Dates: start: 20040227, end: 20040301
  13. DIPYRIDAMOLE [Concomitant]
     Indication: UPPER RESPIRATORY TRACT INFECTION
     Dosage: 45MG PER DAY
     Route: 048
     Dates: start: 20040227, end: 20040301
  14. CIPROFLOXACIN HYDROCHLORIDE [Concomitant]
     Indication: UPPER RESPIRATORY TRACT INFECTION
     Dosage: 600MG PER DAY
     Route: 048
     Dates: start: 20040227, end: 20040301
  15. ASCOMP [Concomitant]
     Indication: UPPER RESPIRATORY TRACT INFECTION
     Dosage: .81G PER DAY
     Route: 048
     Dates: start: 20040227, end: 20040301
  16. CHLOPHEDRIN S [Concomitant]
     Indication: UPPER RESPIRATORY TRACT INFECTION
     Dosage: .99G PER DAY
     Route: 048
     Dates: start: 20040227, end: 20040301
  17. AMMONIUM GLYCYRRHIZATE [Concomitant]
     Indication: URTICARIA
     Route: 042
     Dates: start: 20040313, end: 20040313
  18. ORGADRONE [Concomitant]
     Indication: URTICARIA
     Route: 042
     Dates: start: 20040313, end: 20040313

REACTIONS (8)
  - ALANINE AMINOTRANSFERASE INCREASED [None]
  - ASPARTATE AMINOTRANSFERASE INCREASED [None]
  - BLOOD LACTATE DEHYDROGENASE INCREASED [None]
  - ECZEMA [None]
  - GAMMA-GLUTAMYLTRANSFERASE INCREASED [None]
  - HEPATITIS ACUTE [None]
  - MALAISE [None]
  - SWELLING FACE [None]
